FAERS Safety Report 24432857 (Version 2)
Quarter: 2025Q1

REPORT INFORMATION
  Report Type: Report from Study
  Country: US (occurrence: US)
  Receive Date: 20241014
  Receipt Date: 20250127
  Transmission Date: 20250409
  Serious: Yes (Hospitalization, Other)
  Sender: PFIZER
  Company Number: US-PFIZER INC-PV202400028521

PATIENT
  Age: 67 Year
  Sex: Female

DRUGS (5)
  1. VYNDAMAX [Suspect]
     Active Substance: TAFAMIDIS
     Indication: Cardiac amyloidosis
     Dosage: 61 MG, ONCE DAILY
     Route: 048
     Dates: start: 20230519
  2. VYNDAMAX [Suspect]
     Active Substance: TAFAMIDIS
     Indication: Familial amyloidosis
     Dosage: 61 MG, ONCE DAILY
     Route: 048
  3. VYNDAMAX [Suspect]
     Active Substance: TAFAMIDIS
     Dosage: 61 MG ONCE DAILY
     Route: 048
  4. VYNDAMAX [Suspect]
     Active Substance: TAFAMIDIS
     Dosage: 61 MG ONCE DAILY
     Route: 048
     Dates: start: 20230519
  5. TYMLOS [Concomitant]
     Active Substance: ABALOPARATIDE

REACTIONS (11)
  - Intestinal obstruction [Unknown]
  - Polyneuropathy [Unknown]
  - Drug ineffective [Unknown]
  - Gastrointestinal disorder [Unknown]
  - Urinary tract disorder [Unknown]
  - Osteoporosis [Unknown]
  - Abnormal loss of weight [Unknown]
  - Protein total decreased [Unknown]
  - Condition aggravated [Unknown]
  - Back pain [Unknown]
  - Product dose omission issue [Unknown]
